FAERS Safety Report 8650321 (Version 3)
Quarter: 2012Q4

REPORT INFORMATION
  Report Type: Report from Study
  Country: JP (occurrence: JP)
  Receive Date: 20120705
  Receipt Date: 20121210
  Transmission Date: 20130627
  Serious: Yes (Other)
  Sender: FDA-Public Use
  Company Number: JP-VERTEX PHARMACEUTICALS INC.-AE-2012-009723

PATIENT
  Age: 47 Year
  Sex: Male

DRUGS (13)
  1. VX-950 (TELAPREVIR) [Suspect]
     Indication: CHRONIC HEPATITIS C
     Dosage: 2250 mg, qd
     Route: 048
     Dates: start: 20120112, end: 20120209
  2. VX-950 (TELAPREVIR) [Suspect]
     Dosage: 1500 mg, qd
     Route: 048
     Dates: start: 20120210, end: 20120404
  3. REBETOL [Suspect]
     Indication: CHRONIC HEPATITIS C
     Dosage: 800 mg, qd
     Route: 048
     Dates: start: 20120112, end: 20120208
  4. REBETOL [Suspect]
     Dosage: 400 mg, qd
     Route: 048
     Dates: start: 20120209, end: 20120209
  5. REBETOL [Suspect]
     Dosage: 200 mg, qd
     Route: 048
     Dates: start: 20120210, end: 20120425
  6. REBETOL [Suspect]
     Dosage: 400 mg, qd
     Route: 048
     Dates: start: 20120426, end: 20120627
  7. PEGINTRON                          /01543001/ [Suspect]
     Indication: CHRONIC HEPATITIS C
     Dosage: 1.45 ?g/kg, qw
     Route: 058
     Dates: start: 20120112, end: 20120307
  8. PEGINTRON                          /01543001/ [Suspect]
     Dosage: 0.7 ?g/kg, qw
     Route: 058
     Dates: start: 20120308, end: 20120314
  9. PEGINTRON                          /01543001/ [Suspect]
     Dosage: 1.5 ?g/kg, qw
     Route: 058
     Dates: start: 20120315, end: 20120404
  10. PEGINTRON                          /01543001/ [Suspect]
     Dosage: 0.8 ?g/kg, qw
     Route: 058
     Dates: start: 20120405
  11. PEGINTRON                          /01543001/ [Suspect]
     Dosage: 0.9 ?g/kg, qw
     Route: 058
     Dates: start: 20120405, end: 20120411
  12. PEGINTRON                          /01543001/ [Suspect]
     Dosage: 1.4 ?g/kg, qw
     Route: 058
     Dates: start: 20120412, end: 20120627
  13. ZYLORIC [Concomitant]
     Dosage: 100 mg, qd
     Route: 048
     Dates: start: 20120315

REACTIONS (1)
  - Neutrophil count decreased [Not Recovered/Not Resolved]
